FAERS Safety Report 25785808 (Version 1)
Quarter: 2025Q3

REPORT INFORMATION
  Report Type: Spontaneous
  Country: CN (occurrence: CN)
  Receive Date: 20250910
  Receipt Date: 20250910
  Transmission Date: 20251021
  Serious: Yes (Hospitalization, Other)
  Sender: BAYER HEALTHCARE PHARMACEUTICALS INC.
  Company Number: CN-BAYER-2025A117192

PATIENT
  Age: 70 Year
  Sex: Female
  Weight: 55 kg

DRUGS (6)
  1. ASPIRIN [Suspect]
     Active Substance: ASPIRIN
     Indication: Antiplatelet therapy
     Dosage: 100 MG, QD
     Route: 048
     Dates: start: 20250719, end: 20250820
  2. GLUCOBAY [Suspect]
     Active Substance: ACARBOSE
     Indication: Type 2 diabetes mellitus
     Dosage: 0.1 G, TID
     Route: 048
     Dates: start: 20250710, end: 20250820
  3. IRBESARTAN [Concomitant]
     Active Substance: IRBESARTAN
     Indication: Hypertension
     Dosage: 75 MG, QD
     Route: 048
     Dates: start: 20250717, end: 20250820
  4. METOPROLOL SUCCINATE [Concomitant]
     Active Substance: METOPROLOL SUCCINATE
     Indication: Coronary arterial stent insertion
     Dosage: 47.5 MG, QD
     Route: 048
     Dates: start: 20250710, end: 20250820
  5. METFORMIN HYDROCHLORIDE [Concomitant]
     Active Substance: METFORMIN HYDROCHLORIDE
     Indication: Type 2 diabetes mellitus
     Dosage: 0.5 G, BID
     Route: 048
     Dates: start: 20250710, end: 20250820
  6. ATORVASTATIN CALCIUM [Concomitant]
     Active Substance: ATORVASTATIN CALCIUM
     Indication: Coronary arterial stent insertion
     Dosage: 20 MG, QD
     Route: 048
     Dates: start: 20250710, end: 20250820

REACTIONS (6)
  - Upper gastrointestinal haemorrhage [Recovering/Resolving]
  - Melaena [Recovered/Resolved]
  - Blood loss anaemia [Recovering/Resolving]
  - Haematemesis [Recovered/Resolved]
  - Gastric ulcer [None]
  - Helicobacter infection [None]

NARRATIVE: CASE EVENT DATE: 20250819
